FAERS Safety Report 9895673 (Version 2)
Quarter: 2014Q1

REPORT INFORMATION
  Report Type: Spontaneous
  Country: US (occurrence: US)
  Receive Date: 20140213
  Receipt Date: 20140213
  Transmission Date: 20141002
  Serious: No
  Sender: FDA-Public Use
  Company Number: US-BRISTOL-MYERS SQUIBB COMPANY-18747873

PATIENT
  Age: 61 Year
  Sex: Female
  Weight: 124.71 kg

DRUGS (22)
  1. ABATACEPT SUBQ INJECTION 125MG/ML [Suspect]
     Indication: RHEUMATOID ARTHRITIS
     Dosage: 1DF: 125MG/ML
     Route: 058
     Dates: start: 2012
  2. ASA [Concomitant]
  3. BENICAR [Concomitant]
  4. CELEBREX [Concomitant]
  5. CYMBALTA [Concomitant]
  6. ENABLEX [Concomitant]
  7. ENDOCET [Concomitant]
  8. FOLIC ACID [Concomitant]
  9. LYRICA [Concomitant]
  10. METFORMIN [Concomitant]
  11. METHOTREXATE [Concomitant]
  12. PANTOPRAZOLE [Concomitant]
  13. PERCOCET [Concomitant]
  14. PREDNISONE [Concomitant]
  15. PROTONIX [Concomitant]
  16. SKELAXIN [Concomitant]
  17. SYNTHROID [Concomitant]
  18. TRAMADOL [Concomitant]
  19. VESICARE [Concomitant]
  20. VITAMIN D [Concomitant]
  21. VOLTAREN [Concomitant]
  22. MULTIVITAMINS + MINERALS [Concomitant]

REACTIONS (3)
  - Headache [Unknown]
  - Nasal congestion [Unknown]
  - Nail disorder [Unknown]
